FAERS Safety Report 16216216 (Version 1)
Quarter: 2019Q2

REPORT INFORMATION
  Report Type: Spontaneous
  Country: SE (occurrence: SE)
  Receive Date: 20190419
  Receipt Date: 20190419
  Transmission Date: 20190711
  Serious: Yes (Other)
  Sender: FDA-Public Use
  Company Number: SE-TEVA-2019-SE-1038076

PATIENT
  Age: 19 Year
  Sex: Male

DRUGS (1)
  1. EBILFUMIN [Suspect]
     Active Substance: OSELTAMIVIR PHOSPHATE
     Indication: INFLUENZA
     Dosage: 150 MILLIGRAM DAILY; 75MG 1X2
     Route: 048
     Dates: start: 20190124, end: 20190128

REACTIONS (1)
  - Macular degeneration [Recovered/Resolved]

NARRATIVE: CASE EVENT DATE: 20190129
